FAERS Safety Report 6337069-3 (Version None)
Quarter: 2009Q3

REPORT INFORMATION
  Report Type: 
  Country: None (occurrence: None)
  Receive Date: 20090831
  Receipt Date: 20090805
  Transmission Date: 20100115
  Serious: Yes (Hospitalization)
  Sender: FDA-Public Use
  Company Number: 2009SP020449

PATIENT
  Age: 20 Year
  Sex: Female
  Weight: 61.2356 kg

DRUGS (5)
  1. NUVARING [Suspect]
     Indication: CONTRACEPTION
     Dosage: 1 DF; QM
     Dates: start: 20030101, end: 20040101
  2. SINGULAIR [Concomitant]
  3. ALLEGRA [Concomitant]
  4. ALBUTEROL [Concomitant]
  5. ADDERALL 10 [Concomitant]

REACTIONS (5)
  - DEEP VEIN THROMBOSIS [None]
  - OEDEMA [None]
  - PAIN [None]
  - SCAR [None]
  - THORACIC OUTLET SYNDROME [None]
